FAERS Safety Report 18238287 (Version 3)
Quarter: 2020Q3

REPORT INFORMATION
  Report Type: Report from Study
  Country: US (occurrence: US)
  Receive Date: 20200907
  Receipt Date: 20200925
  Transmission Date: 20201103
  Serious: Yes (Other)
  Sender: FDA-Public Use
  Company Number: US-TAKEDA-2020TUS037498

PATIENT
  Age: 38 Year
  Sex: Female

DRUGS (1)
  1. VEDOLIZUMAB [Suspect]
     Active Substance: VEDOLIZUMAB
     Indication: CROHN^S DISEASE
     Dosage: 300 MILLIGRAM
     Route: 042
     Dates: start: 201707

REACTIONS (8)
  - Ankle fracture [Unknown]
  - Rectal haemorrhage [Unknown]
  - Influenza like illness [Recovered/Resolved]
  - Foot fracture [Unknown]
  - Poor venous access [Unknown]
  - Fall [Unknown]
  - Weight decreased [Unknown]
  - Haematochezia [Unknown]

NARRATIVE: CASE EVENT DATE: 202004
